FAERS Safety Report 6803977-X (Version None)
Quarter: 2010Q2

REPORT INFORMATION
  Report Type: 
  Country: None (occurrence: None)
  Receive Date: 20100628
  Receipt Date: 20060523
  Transmission Date: 20101027
  Serious: No
  Sender: FDA-Public Use
  Company Number: US-PFIZER INC-2006067950

PATIENT
  Sex: Female
  Weight: 56.7 kg

DRUGS (5)
  1. SUTENT [Suspect]
     Indication: NEOPLASM MALIGNANT
     Route: 048
     Dates: start: 20060401
  2. TOPROL-XL [Concomitant]
     Indication: HYPERTENSION
     Route: 065
  3. IBUPROFEN [Concomitant]
     Indication: PAIN
     Route: 065
  4. ZANTAC [Concomitant]
     Indication: ABDOMINAL PAIN UPPER
     Route: 065
  5. DRUG, UNSPECIFIED [Concomitant]
     Route: 065

REACTIONS (1)
  - AGEUSIA [None]
